APPROVED DRUG PRODUCT: GABAPENTIN
Active Ingredient: GABAPENTIN
Strength: 600MG
Dosage Form/Route: TABLET;ORAL
Application: A203643 | Product #001 | TE Code: AB2
Applicant: ABON PHARMACEUTICALS LLC
Approved: Sep 9, 2024 | RLD: No | RS: No | Type: RX